FAERS Safety Report 8689283 (Version 2)
Quarter: 2012Q4

REPORT INFORMATION
  Report Type: 
  Country: US (occurrence: US)
  Receive Date: 20120727
  Receipt Date: 20121119
  Transmission Date: 20130627
  Serious: No
  Sender: FDA-Public Use
  Company Number: US-ASTRAZENECA-2011SE75951

PATIENT
  Age: 65 Year
  Sex: Female
  Weight: 76.2 kg

DRUGS (15)
  1. SEROQUEL [Suspect]
     Indication: BIPOLAR DISORDER
     Route: 048
  2. SEROQUEL [Suspect]
     Indication: BIPOLAR DISORDER
     Dosage: 400 MG AT NIGHT 200 MG IN THE MORNING
     Route: 048
  3. SEROQUEL [Suspect]
     Indication: BIPOLAR DISORDER
     Route: 048
  4. SEROQUEL [Suspect]
     Indication: BIPOLAR DISORDER
     Route: 048
  5. XELEXA [Concomitant]
  6. XANAX [Concomitant]
  7. XANAX [Concomitant]
     Dosage: 2 MG IN THE MORNING AND 1 MG SOMETIMES IN THE DAY AND SOMETIMES 1 MG AT NIGHT
  8. LISINOPRIL [Concomitant]
     Indication: HYPERTENSION
  9. TRAVASTATIN [Concomitant]
     Indication: BLOOD CHOLESTEROL ABNORMAL
  10. ISORB MONO [Concomitant]
  11. ASPIRIN [Concomitant]
  12. FISH OIL [Concomitant]
  13. MELOXAN [Concomitant]
     Indication: ANTIINFLAMMATORY THERAPY
  14. ERYTHROMYCIN [Concomitant]
     Indication: ANTIBIOTIC THERAPY
  15. LAMICTAL [Concomitant]
     Indication: MOOD SWINGS

REACTIONS (26)
  - Cardiac failure congestive [Unknown]
  - Pain [Unknown]
  - Intervertebral disc protrusion [Unknown]
  - Nerve compression [Unknown]
  - Bronchitis [Unknown]
  - Insomnia [Unknown]
  - Nasopharyngitis [Unknown]
  - Respiratory tract congestion [Unknown]
  - Adverse event [Unknown]
  - Poor quality sleep [Unknown]
  - Pneumonia [Unknown]
  - Hepatic neoplasm [Unknown]
  - Depression [Unknown]
  - Tachyphrenia [Unknown]
  - Social avoidant behaviour [Unknown]
  - Stress [Unknown]
  - Adjustment disorder [Unknown]
  - Yawning [Unknown]
  - Drug ineffective [Unknown]
  - Bipolar disorder [Unknown]
  - Fatigue [Unknown]
  - Muscle spasms [Unknown]
  - Somnolence [Unknown]
  - Hypersomnia [Unknown]
  - Weight increased [Unknown]
  - Drug dose omission [Unknown]
